FAERS Safety Report 8591571-2 (Version None)
Quarter: 2012Q3

REPORT INFORMATION
  Report Type: 
  Country: None (occurrence: None)
  Receive Date: 20120814
  Receipt Date: 20120809
  Transmission Date: 20120928
  Serious: Yes (Other)
  Sender: FDA-Public Use
  Company Number: US-PFIZER INC-2012195515

PATIENT
  Age: 44 Year
  Sex: Female
  Weight: 81.633 kg

DRUGS (1)
  1. LYRICA [Suspect]
     Indication: NERVE INJURY
     Dosage: 150 MG, 2X/DAY
     Dates: start: 20070101, end: 20120701

REACTIONS (2)
  - NEURALGIA [None]
  - BACK PAIN [None]
